FAERS Safety Report 24623301 (Version 6)
Quarter: 2024Q4

REPORT INFORMATION
  Report Type: Report from Study
  Country: ES (occurrence: ES)
  Receive Date: 20241115
  Receipt Date: 20241223
  Transmission Date: 20250115
  Serious: Yes (Other)
  Sender: ABBVIE
  Company Number: ES-ABBVIE-5974947

PATIENT
  Age: 68 Year
  Sex: Female

DRUGS (2)
  1. CARBIDOPA\LEVODOPA [Suspect]
     Active Substance: CARBIDOPA\LEVODOPA
     Indication: Parkinson^s disease
     Dosage: 240 MG/ML + 12 MG/ML SOLUCION PARA PERFUSION
     Route: 058
     Dates: start: 20240923
  2. MIRABEGRON [Concomitant]
     Active Substance: MIRABEGRON
     Indication: Product used for unknown indication
     Dates: start: 2024

REACTIONS (12)
  - Oropharyngeal discomfort [Unknown]
  - Psychomotor hyperactivity [Recovered/Resolved]
  - Agitation [Recovering/Resolving]
  - Hypertension [Recovered/Resolved]
  - Restlessness [Unknown]
  - Drug ineffective [Unknown]
  - Disorientation [Unknown]
  - Puncture site rash [Not Recovered/Not Resolved]
  - Gait inability [Recovering/Resolving]
  - Arrhythmia [Unknown]
  - Incorrect dose administered [Unknown]
  - Asthenia [Unknown]

NARRATIVE: CASE EVENT DATE: 20240101
